FAERS Safety Report 15453207 (Version 1)
Quarter: 2018Q4

REPORT INFORMATION
  Report Type: Spontaneous
  Country: DE (occurrence: DE)
  Receive Date: 20181001
  Receipt Date: 20181001
  Transmission Date: 20190204
  Serious: Yes (Hospitalization, Other)
  Sender: FDA-Public Use
  Company Number: DE-GUERBET-DE-20100085

PATIENT
  Sex: Male
  Weight: 92 kg

DRUGS (1)
  1. DOTAREM [Suspect]
     Active Substance: GADOTERATE MEGLUMINE
     Indication: NUCLEAR MAGNETIC RESONANCE IMAGING
     Route: 042
     Dates: start: 20100929, end: 20100929

REACTIONS (6)
  - Dysphonia [Recovered/Resolved]
  - Sensation of foreign body [Recovered/Resolved]
  - Vascular stent stenosis [Recovered/Resolved]
  - Syncope [Recovered/Resolved]
  - Oedema mucosal [Recovered/Resolved]
  - Enuresis [Recovered/Resolved]

NARRATIVE: CASE EVENT DATE: 20100929
